FAERS Safety Report 16230129 (Version 4)
Quarter: 2019Q3

REPORT INFORMATION
  Report Type: Spontaneous
  Country: PE (occurrence: PE)
  Receive Date: 20190423
  Receipt Date: 20190723
  Transmission Date: 20191004
  Serious: Yes (Death, Life-Threatening, Hospitalization, Other)
  Sender: FDA-Public Use
  Company Number: PE-B.I. PHARMACEUTICALS,INC./RIDGEFIELD-2019-BI-018037

PATIENT
  Age: 91 Year
  Sex: Female
  Weight: 70 kg

DRUGS (4)
  1. PRADAXA [Suspect]
     Active Substance: DABIGATRAN ETEXILATE MESYLATE
     Indication: THROMBOSIS
     Route: 048
     Dates: start: 2017, end: 20190415
  2. PRADAXA [Suspect]
     Active Substance: DABIGATRAN ETEXILATE MESYLATE
     Route: 048
     Dates: start: 20190502, end: 20190528
  3. ALPRAZOLAM. [Concomitant]
     Active Substance: ALPRAZOLAM
     Indication: INSOMNIA
     Route: 048
  4. ENALAPRIL [Concomitant]
     Active Substance: ENALAPRIL
     Indication: HYPERTENSION
     Route: 048

REACTIONS (6)
  - Hernia [Recovered/Resolved]
  - Intestinal obstruction [Recovered/Resolved]
  - Feeling abnormal [Unknown]
  - Oral discomfort [Unknown]
  - Infarction [Fatal]
  - Anxiety [Fatal]

NARRATIVE: CASE EVENT DATE: 20190415
